FAERS Safety Report 19622898 (Version 1)
Quarter: 2021Q3

REPORT INFORMATION
  Report Type: Spontaneous
  Country: GR (occurrence: GR)
  Receive Date: 20210728
  Receipt Date: 20210728
  Transmission Date: 20211014
  Serious: Yes (Life-Threatening, Hospitalization)
  Sender: FDA-Public Use
  Company Number: GR-MYLANLABS-2021M1046279

PATIENT
  Age: 52 Year
  Sex: Female

DRUGS (13)
  1. DEXAMETHASONE. [Suspect]
     Active Substance: DEXAMETHASONE
     Indication: COVID-19 PNEUMONIA
     Route: 042
  2. AMPICILLIN/SULBACTAM ACTAVIS [Suspect]
     Active Substance: AMPICILLIN SODIUM\SULBACTAM SODIUM
     Indication: COVID-19 PNEUMONIA
     Route: 042
  3. HYDROCORTISONE. [Concomitant]
     Active Substance: HYDROCORTISONE
     Indication: ANAPHYLACTIC REACTION
  4. DIMETINDENE [Concomitant]
     Active Substance: DIMETHINDENE
     Indication: ACUTE MYOCARDIAL INFARCTION
  5. HYDROCORTISONE. [Concomitant]
     Active Substance: HYDROCORTISONE
     Indication: ACUTE MYOCARDIAL INFARCTION
  6. REMDESIVIR. [Concomitant]
     Active Substance: REMDESIVIR
     Indication: COVID-19 PNEUMONIA
     Route: 042
  7. DIMETINDENE [Concomitant]
     Active Substance: DIMETHINDENE
     Indication: KOUNIS SYNDROME
     Route: 065
  8. AZITHROMYCIN ANHYDROUS. [Suspect]
     Active Substance: AZITHROMYCIN ANHYDROUS
     Indication: COVID-19 PNEUMONIA
     Dosage: 500 MILLIGRAM
     Route: 042
  9. HYDROCORTISONE. [Concomitant]
     Active Substance: HYDROCORTISONE
     Indication: KOUNIS SYNDROME
     Route: 065
  10. TINZAPARIN [Concomitant]
     Active Substance: TINZAPARIN
     Indication: ANAPHYLACTIC REACTION
  11. TINZAPARIN [Concomitant]
     Active Substance: TINZAPARIN
     Indication: ACUTE MYOCARDIAL INFARCTION
  12. DIMETINDENE [Concomitant]
     Active Substance: DIMETHINDENE
     Indication: ANAPHYLACTIC REACTION
  13. TINZAPARIN [Concomitant]
     Active Substance: TINZAPARIN
     Indication: KOUNIS SYNDROME
     Route: 065

REACTIONS (5)
  - Anaphylactic reaction [Recovering/Resolving]
  - Cardio-respiratory arrest [Recovering/Resolving]
  - Kounis syndrome [Recovering/Resolving]
  - Acute myocardial infarction [Recovering/Resolving]
  - Off label use [Unknown]
